FAERS Safety Report 16545173 (Version 1)
Quarter: 2019Q3

REPORT INFORMATION
  Report Type: Spontaneous
  Country: ES (occurrence: ES)
  Receive Date: 20190709
  Receipt Date: 20190709
  Transmission Date: 20191004
  Serious: Yes (Other)
  Sender: FDA-Public Use
  Company Number: ES-MYLANLABS-2019M1062367

PATIENT
  Age: 62 Year
  Sex: Male

DRUGS (9)
  1. ATENOLOL. [Interacting]
     Active Substance: ATENOLOL
     Dosage: 50 MILLIGRAM, PM (100 MG AT BREAKFAST AND 50 MG AT DINNER)
  2. DIAZEPAM. [Interacting]
     Active Substance: DIAZEPAM
     Indication: INSOMNIA
     Dosage: 5 MILLIGRAM
  3. SERTRALINE [Suspect]
     Active Substance: SERTRALINE HYDROCHLORIDE
     Indication: PSYCHOTIC DISORDER
     Dosage: 50 MILLIGRAM
  4. TRAZODONE [Interacting]
     Active Substance: TRAZODONE HYDROCHLORIDE
     Indication: INSOMNIA
     Dosage: 100 MILLIGRAM
  5. ACETYLSALICYLIC ACID [Interacting]
     Active Substance: ASPIRIN
     Indication: HYPERTROPHIC CARDIOMYOPATHY
     Dosage: 100 MILLIGRAM, QD (100 MG DAILY)
  6. DILTIAZEM. [Interacting]
     Active Substance: DILTIAZEM
     Indication: HYPERTROPHIC CARDIOMYOPATHY
     Dosage: 120 MILLIGRAM (120 MG EVERY 12 HOURS)
  7. ATENOLOL. [Interacting]
     Active Substance: ATENOLOL
     Indication: ESSENTIAL HYPERTENSION
     Dosage: 100 MILLIGRAM, AM (100 MG AT BREAKFAST AND 50 MG AT DINNER)
  8. AMITRIPTYLINE [Interacting]
     Active Substance: AMITRIPTYLINE
     Indication: MYOFASCIAL PAIN SYNDROME
     Dosage: 10 MILLIGRAM
  9. OXYCODONE [Interacting]
     Active Substance: OXYCODONE
     Indication: MYOFASCIAL PAIN SYNDROME
     Dosage: UNK (15 / 7.5 MG EVERY 12 HOURS)

REACTIONS (4)
  - Incontinence [Unknown]
  - Fall [Unknown]
  - Drug interaction [Unknown]
  - Loss of consciousness [Unknown]
